FAERS Safety Report 13416594 (Version 1)
Quarter: 2017Q2

REPORT INFORMATION
  Report Type: Spontaneous
  Country: US (occurrence: US)
  Receive Date: 20170407
  Receipt Date: 20170407
  Transmission Date: 20170830
  Serious: Yes (Hospitalization, Other)
  Sender: FDA-Public Use
  Company Number: US-INDIVIOR LIMITED-INDV-100097-2017

PATIENT
  Sex: Male
  Weight: 56.7 kg

DRUGS (6)
  1. LYRICA [Suspect]
     Active Substance: PREGABALIN
     Indication: FIBROMYALGIA
     Dosage: 1200 MG DAILY
     Route: 065
     Dates: start: 2005
  2. ALCOHOL. [Suspect]
     Active Substance: ALCOHOL
     Indication: PRODUCT USED FOR UNKNOWN INDICATION
     Dosage: UNK
     Route: 065
  3. SUBOXONE [Suspect]
     Active Substance: BUPRENORPHINE HYDROCHLORIDE\NALOXONE HYDROCHLORIDE
     Indication: PRODUCT USED FOR UNKNOWN INDICATION
     Dosage: 8MG, HALF A PILL FOUR TIMES DAILY
     Route: 065
  4. LYRICA [Suspect]
     Active Substance: PREGABALIN
     Dosage: 200MG, THRICE DAILY
     Route: 065
  5. LYRICA [Suspect]
     Active Substance: PREGABALIN
     Dosage: 300MG TWO TIMES DAILY
     Route: 065
  6. GABAPENTIN. [Suspect]
     Active Substance: GABAPENTIN
     Indication: NEUROPATHY PERIPHERAL
     Dosage: UNK
     Route: 065

REACTIONS (14)
  - Speech disorder [Unknown]
  - Anxiety [Unknown]
  - Memory impairment [Unknown]
  - Vision blurred [Unknown]
  - Hallucination, auditory [Unknown]
  - Product use issue [Unknown]
  - Abdominal discomfort [Unknown]
  - Alcohol abuse [Unknown]
  - Decreased appetite [Unknown]
  - Pain [Unknown]
  - Product preparation error [Unknown]
  - Agitation [Unknown]
  - Drug withdrawal syndrome [Unknown]
  - Insomnia [Unknown]
